FAERS Safety Report 17301026 (Version 1)
Quarter: 2020Q1

REPORT INFORMATION
  Report Type: Spontaneous
  Country: US (occurrence: US)
  Receive Date: 20200122
  Receipt Date: 20200122
  Transmission Date: 20200409
  Serious: Yes (Other)
  Sender: FDA-Public Use
  Company Number: US-TEVA-2020-US-1171421

PATIENT
  Sex: Female

DRUGS (1)
  1. HYDRALAZINE HCL TABLETS USP [Suspect]
     Active Substance: HYDRALAZINE HYDROCHLORIDE
     Indication: MALIGNANT HYPERTENSION
     Route: 065

REACTIONS (2)
  - Gait inability [Unknown]
  - Pain [Unknown]
